FAERS Safety Report 25978393 (Version 2)
Quarter: 2025Q4

REPORT INFORMATION
  Report Type: Spontaneous
  Country: US (occurrence: US)
  Receive Date: 20251030
  Receipt Date: 20251108
  Transmission Date: 20260117
  Serious: Yes (Life-Threatening, Hospitalization, Other)
  Sender: AUROBINDO
  Company Number: US-MLMSERVICE-20251013-PI674186-00108-1

PATIENT
  Age: 18 Year
  Sex: Female

DRUGS (12)
  1. CLOZAPINE [Suspect]
     Active Substance: CLOZAPINE
     Indication: Defiant behaviour
     Dosage: 12.5 MILLIGRAM, EVERY WEEK (INDUCTION THERAPY)
     Route: 065
  2. CLOZAPINE [Suspect]
     Active Substance: CLOZAPINE
     Indication: Agitation
     Dosage: DOSE INCREASED TO 62.5 MG DAILY
     Route: 065
  3. CLOZAPINE [Suspect]
     Active Substance: CLOZAPINE
     Dosage: 50 MILLIGRAM
     Route: 065
  4. VALPROIC ACID [Suspect]
     Active Substance: VALPROIC ACID
     Indication: Agitation
     Dosage: 1-9 ON DAY 4
     Route: 065
  5. ACETYLCYSTEINE [Concomitant]
     Active Substance: ACETYLCYSTEINE
     Indication: Antipsychotic therapy
     Dosage: 60 MILLIGRAM
     Route: 065
  6. CLONIDINE [Concomitant]
     Active Substance: CLONIDINE
     Indication: Antipsychotic therapy
     Dosage: 0.1 MILLIGRAM, EVERY WEEK
     Route: 065
  7. OXCARBAZEPINE [Concomitant]
     Active Substance: OXCARBAZEPINE
     Indication: Antipsychotic therapy
     Dosage: 300 MILLIGRAM
     Route: 065
  8. LORAZEPAM [Concomitant]
     Active Substance: LORAZEPAM
     Indication: Antipsychotic therapy
     Dosage: 1.5 MG EACH MORNING/1.5 MG MIDDAY/2 MG AT BEDTIME
     Route: 065
  9. FLUOXETINE [Concomitant]
     Active Substance: FLUOXETINE HYDROCHLORIDE
     Indication: Antipsychotic therapy
     Dosage: 30 MILLIGRAM, DAILY
     Route: 065
  10. HALOPERIDOL [Concomitant]
     Active Substance: HALOPERIDOL
     Indication: Antipsychotic therapy
     Dosage: 25 MILLIGRAM
     Route: 065
  11. MELATONIN [Concomitant]
     Active Substance: MELATONIN
     Indication: Antipsychotic therapy
     Dosage: 5 MILLIGRAM, ONCE A DAY
     Route: 065
  12. DEXMEDETOMIDINE [Concomitant]
     Active Substance: DEXMEDETOMIDINE
     Indication: Agitation
     Dosage: UNK
     Route: 065

REACTIONS (5)
  - Myocarditis [Recovered/Resolved]
  - Pericardial effusion [Recovering/Resolving]
  - Orthostatic hypotension [Recovering/Resolving]
  - Somnolence [Unknown]
  - Agitation [Unknown]
